FAERS Safety Report 7794749-0 (Version None)
Quarter: 2011Q4

REPORT INFORMATION
  Report Type: 
  Country: None (occurrence: None)
  Receive Date: 20111004
  Receipt Date: 20110928
  Transmission Date: 20120403
  Serious: Yes (Other)
  Sender: FDA-Public Use
  Company Number: US-PFIZER INC-2011231190

PATIENT

DRUGS (2)
  1. PRISTIQ [Suspect]
     Dosage: UNK
  2. VENLAFAXINE HYDROCHLORIDE [Concomitant]
     Indication: EMOTIONAL DISORDER
     Dosage: 100 MG, 2X/DAY

REACTIONS (2)
  - DEPRESSION [None]
  - ANXIETY [None]
